FAERS Safety Report 23377776 (Version 3)
Quarter: 2025Q4

REPORT INFORMATION
  Report Type: Report from Study
  Country: JP (occurrence: JP)
  Receive Date: 20240108
  Receipt Date: 20251031
  Transmission Date: 20260118
  Serious: Yes (Other)
  Sender: ROCHE
  Company Number: JP-ROCHE-3484606

PATIENT

DRUGS (5)
  1. POLATUZUMAB VEDOTIN [Suspect]
     Active Substance: POLATUZUMAB VEDOTIN
     Indication: Diffuse large B-cell lymphoma
     Dosage: ON DAY 1 OF EACH CYCLE,
     Route: 042
  2. RITUXIMAB [Suspect]
     Active Substance: RITUXIMAB
     Indication: Diffuse large B-cell lymphoma
     Route: 042
  3. CYCLOPHOSPHAMIDE [Suspect]
     Active Substance: CYCLOPHOSPHAMIDE
     Indication: Diffuse large B-cell lymphoma
     Route: 042
  4. DOXORUBICIN [Suspect]
     Active Substance: DOXORUBICIN
     Indication: Diffuse large B-cell lymphoma
     Route: 042
  5. PREDNISONE [Suspect]
     Active Substance: PREDNISONE
     Indication: Diffuse large B-cell lymphoma
     Dosage: ON DAYS 1 TO 5
     Route: 048

REACTIONS (22)
  - Anaemia [Unknown]
  - Neutropenia [Unknown]
  - Leukopenia [Unknown]
  - Thrombocytopenia [Unknown]
  - Blood sodium decreased [Unknown]
  - Aspartate aminotransferase increased [Unknown]
  - Blood creatinine increased [Unknown]
  - Blood potassium increased [Unknown]
  - Alanine aminotransferase increased [Unknown]
  - Blood calcium decreased [Unknown]
  - Constipation [Unknown]
  - Amylase increased [Unknown]
  - Nausea [Unknown]
  - Stomatitis [Unknown]
  - Taste disorder [Unknown]
  - Rash [Unknown]
  - Oedema [Unknown]
  - Neuropathy peripheral [Unknown]
  - COVID-19 pneumonia [Unknown]
  - Diarrhoea [Unknown]
  - Herpes zoster [Unknown]
  - Bacteraemia [Unknown]
